FAERS Safety Report 19112354 (Version 3)
Quarter: 2021Q4

REPORT INFORMATION
  Report Type: Report from Study
  Country: US (occurrence: US)
  Receive Date: 20210409
  Receipt Date: 20211227
  Transmission Date: 20220303
  Serious: Yes (Hospitalization, Other)
  Sender: FDA-Public Use
  Company Number: US-JNJFOC-20210342195

PATIENT
  Age: 51 Year
  Sex: Female
  Weight: 59.1 kg

DRUGS (3)
  1. MACITENTAN [Suspect]
     Active Substance: MACITENTAN
     Indication: Pulmonary arterial hypertension
     Route: 048
  2. MACITENTAN [Suspect]
     Active Substance: MACITENTAN
     Route: 048
  3. SILDENAFIL CITRATE [Concomitant]
     Active Substance: SILDENAFIL CITRATE

REACTIONS (3)
  - Unevaluable event [Unknown]
  - Breast cancer [Unknown]
  - Catheter site haemorrhage [Unknown]

NARRATIVE: CASE EVENT DATE: 20210315
